FAERS Safety Report 8793267 (Version 2)
Quarter: 2015Q1

REPORT INFORMATION
  Report Type: Report from Study
  Country: US (occurrence: US)
  Receive Date: 20120918
  Receipt Date: 20150206
  Transmission Date: 20150721
  Serious: Yes (Death)
  Sender: FDA-Public Use
  Company Number: US-ROCHE-1124410

PATIENT
  Age: 54 Year
  Sex: Male
  Weight: 61.5 kg

DRUGS (8)
  1. DEXAMETHASONE. [Concomitant]
     Active Substance: DEXAMETHASONE
     Route: 065
  2. DIPHENHYDRAMINE [Concomitant]
     Active Substance: DIPHENHYDRAMINE
     Route: 042
  3. EPINEPHRINE. [Concomitant]
     Active Substance: EPINEPHRINE
  4. AVASTIN [Suspect]
     Active Substance: BEVACIZUMAB
     Route: 042
     Dates: start: 20090812, end: 20090813
  5. AVASTIN [Suspect]
     Active Substance: BEVACIZUMAB
     Indication: BRAIN NEOPLASM MALIGNANT
     Route: 042
     Dates: start: 20090611
  6. TEMSIROLIMUS [Concomitant]
     Active Substance: TEMSIROLIMUS
     Route: 042
  7. NACL .9% [Concomitant]
     Route: 042
  8. HYDROCORTISONE. [Concomitant]
     Active Substance: HYDROCORTISONE
     Route: 042

REACTIONS (4)
  - Death [Fatal]
  - Dyspnoea [Unknown]
  - Swelling face [Unknown]
  - Hypotension [Unknown]

NARRATIVE: CASE EVENT DATE: 20090827
